FAERS Safety Report 6406611-6 (Version None)
Quarter: 2009Q4

REPORT INFORMATION
  Report Type: 
  Country: None (occurrence: None)
  Receive Date: 20091014
  Receipt Date: 20090929
  Transmission Date: 20100525
  Serious: Yes (Other)
  Sender: FDA-Public Use
  Company Number: 390001M09CHE

PATIENT
  Age: 37 Year
  Sex: Female

DRUGS (2)
  1. CETROTIDE [Suspect]
     Indication: INFERTILITY
     Dosage: 0.25 MG, SUBCUTANEOUS
     Route: 058
     Dates: start: 20090923
  2. GONAL-F [Suspect]
     Indication: INFERTILITY
     Dosage: 150 IU

REACTIONS (2)
  - HEART RATE INCREASED [None]
  - HYPERTENSION [None]
